FAERS Safety Report 8562227-7 (Version None)
Quarter: 2012Q3

REPORT INFORMATION
  Report Type: 
  Country: None (occurrence: None)
  Receive Date: 20120802
  Receipt Date: 20120711
  Transmission Date: 20120928
  Serious: No
  Sender: FDA-Public Use
  Company Number: US-AMGEN-USASP2012043057

PATIENT
  Age: 53 Year
  Sex: Female

DRUGS (2)
  1. ENBREL [Suspect]
     Indication: RHEUMATOID ARTHRITIS
     Dosage: 50 MG, QWK
     Dates: start: 20120618
  2. PLAQUENIL [Concomitant]
     Dosage: 1 MG, TWICE DAILY
     Dates: start: 20120601

REACTIONS (4)
  - INJECTION SITE RASH [None]
  - RASH [None]
  - CONTUSION [None]
  - PAIN IN EXTREMITY [None]
